FAERS Safety Report 8834815 (Version 1)
Quarter: 2012Q4

REPORT INFORMATION
  Report Type: 
  Country: US (occurrence: US)
  Receive Date: 20121010
  Receipt Date: 20121010
  Transmission Date: 20130627
  Serious: Yes (Death, Hospitalization)
  Sender: FDA-Public Use
  Company Number: US-GLAXOSMITHKLINE-A0996858A

PATIENT
  Age: 59 Year
  Sex: Female
  Weight: 65 kg

DRUGS (1)
  1. FLOLAN [Suspect]
     Indication: PULMONARY HYPERTENSION
     Dosage: 36NGKM See dosage text
     Route: 042
     Dates: start: 20120328

REACTIONS (3)
  - Death [Fatal]
  - Renal failure [Unknown]
  - Blood pressure decreased [Unknown]
